FAERS Safety Report 5348904-X (Version None)
Quarter: 2007Q2

REPORT INFORMATION
  Report Type: 
  Country: None (occurrence: None)
  Receive Date: 20070607
  Receipt Date: 20070529
  Transmission Date: 20071010
  Serious: Yes (Other)
  Sender: FDA-Public Use
  Company Number: PHEH2007US05531

PATIENT
  Sex: Male

DRUGS (10)
  1. ZELNORM [Suspect]
     Indication: IRRITABLE BOWEL SYNDROME
     Dosage: 6 MG, BID
     Dates: start: 20050101, end: 20070413
  2. LACTULOSE [Concomitant]
     Dosage: 10-15ML, BID - TID
  3. ACIPHEX [Concomitant]
     Dosage: 20 MG, QD
  4. DOXAZOSIN MESYLATE [Concomitant]
     Dosage: 8 MG, QD
  5. GLIMEPIRIDE [Concomitant]
     Dosage: 4 MG, QD
  6. OXAZEPAM [Concomitant]
     Dosage: 15 MG, TID
  7. PROMETHAZINE [Concomitant]
     Dosage: 25 MG, Q4H -6H, PRN
  8. PROTONIX [Concomitant]
     Dosage: 40 MG, QD
  9. MORPHINE [Concomitant]
     Dosage: 15 MG, Q8H
  10. AMBIEN [Concomitant]
     Dosage: 10 MG, QHS

REACTIONS (6)
  - CHEST PAIN [None]
  - DYSPNOEA [None]
  - MUSCULAR WEAKNESS [None]
  - MYOCARDIAL ISCHAEMIA [None]
  - OEDEMA PERIPHERAL [None]
  - STENT PLACEMENT [None]
